FAERS Safety Report 4594363-4 (Version None)
Quarter: 2005Q1

REPORT INFORMATION
  Report Type: 
  Country: None (occurrence: None)
  Receive Date: 20050301
  Receipt Date: 20041118
  Transmission Date: 20050727
  Serious: No
  Sender: FDA-Public Use
  Company Number: US-GLAXOSMITHKLINE-A0534487A

PATIENT
  Age: 34 Year
  Sex: Male

DRUGS (1)
  1. VALTREX [Suspect]
     Indication: ILL-DEFINED DISORDER
     Dosage: 500MG UNKNOWN
     Route: 048

REACTIONS (5)
  - DYSGEUSIA [None]
  - DYSPNOEA [None]
  - INFLUENZA LIKE ILLNESS [None]
  - OVERDOSE [None]
  - RED BLOOD CELL COUNT INCREASED [None]
